FAERS Safety Report 12442748 (Version 2)
Quarter: 2016Q2

REPORT INFORMATION
  Report Type: Spontaneous
  Country: TN (occurrence: TN)
  Receive Date: 20160607
  Receipt Date: 20160613
  Transmission Date: 20160815
  Serious: Yes (Other)
  Sender: FDA-Public Use
  Company Number: PHHY2016TN076594

PATIENT
  Age: 47 Year

DRUGS (1)
  1. CICLOSPORIN [Suspect]
     Active Substance: CYCLOSPORINE
     Indication: STEM CELL TRANSPLANT
     Route: 065

REACTIONS (3)
  - Prothrombin time prolonged [Recovered/Resolved]
  - Thrombotic microangiopathy [Unknown]
  - Hypofibrinogenaemia [Recovering/Resolving]
